FAERS Safety Report 12310402 (Version 2)
Quarter: 2017Q2

REPORT INFORMATION
  Report Type: Spontaneous
  Country: US (occurrence: US)
  Receive Date: 20160427
  Receipt Date: 20170427
  Transmission Date: 20170830
  Serious: No
  Sender: FDA-Public Use
  Company Number: US-MYLANLABS-2016M1003620

PATIENT

DRUGS (2)
  1. LORAZEPAM. [Suspect]
     Active Substance: LORAZEPAM
     Indication: ANXIETY
     Dosage: BID TO TID, PRN
  2. LORAZEPAM. [Suspect]
     Active Substance: LORAZEPAM
     Indication: ANXIETY
     Dosage: BID TO TID, PRN
     Route: 065

REACTIONS (12)
  - Fluid retention [Not Recovered/Not Resolved]
  - Secretion discharge [Not Recovered/Not Resolved]
  - Functional gastrointestinal disorder [Unknown]
  - Mucous stools [Not Recovered/Not Resolved]
  - Constipation [Not Recovered/Not Resolved]
  - Drug ineffective [Not Recovered/Not Resolved]
  - Diverticulum [Unknown]
  - Unevaluable event [Unknown]
  - Urinary tract disorder [Unknown]
  - Depression [Not Recovered/Not Resolved]
  - Fungal infection [Not Recovered/Not Resolved]
  - Abdominal distension [Not Recovered/Not Resolved]
